FAERS Safety Report 17047501 (Version 2)
Quarter: 2020Q1

REPORT INFORMATION
  Report Type: Spontaneous
  Country: US (occurrence: US)
  Receive Date: 20191119
  Receipt Date: 20200320
  Transmission Date: 20200409
  Serious: Yes (Hospitalization, Other)
  Sender: FDA-Public Use
  Company Number: US-PFIZER INC-2019494318

PATIENT
  Age: 77 Year
  Sex: Female

DRUGS (3)
  1. PREMARIN [Suspect]
     Active Substance: ESTROGENS, CONJUGATED
     Indication: UTERINE PROLAPSE
     Dosage: WENT TO THE SECOND NOTCH ON THE TUBE, TWICE A WEEK
  2. PREMARIN [Suspect]
     Active Substance: ESTROGENS, CONJUGATED
     Dosage: WENT TO THE SECOND NOTCH ON THE TUBE, TWICE A WEEK
  3. PREMARIN [Suspect]
     Active Substance: ESTROGENS, CONJUGATED
     Dosage: WENT TO THE SECOND NOTCH ON THE TUBE, TWICE A WEEK

REACTIONS (9)
  - Hypoacusis [Unknown]
  - Hypoaesthesia [Unknown]
  - Nervousness [Unknown]
  - Hip fracture [Unknown]
  - Wrong technique in product usage process [Unknown]
  - Frustration tolerance decreased [Unknown]
  - Tremor [Unknown]
  - Cataract [Unknown]
  - Speech disorder [Unknown]
